FAERS Safety Report 8964896 (Version 1)
Quarter: 2012Q4

REPORT INFORMATION
  Report Type: 
  Country: IT (occurrence: IT)
  Receive Date: 20121213
  Receipt Date: 20121213
  Transmission Date: 20130627
  Serious: Yes (Hospitalization)
  Sender: FDA-Public Use
  Company Number: IT-ARROW-2012-21849

PATIENT
  Age: 39 Year
  Sex: Female

DRUGS (5)
  1. METFORMIN HYDROCHLORIDE [Suspect]
     Indication: SUICIDE ATTEMPT
     Dosage: daily dose unk, overdose with 20 DF total
     Route: 048
     Dates: start: 20121011
  2. SERTRALINE HYDROCHLORIDE (UNKNOWN) [Suspect]
     Indication: SUICIDE ATTEMPT
     Dosage: daily dose unknown, overdose 9 DF total
     Route: 048
     Dates: start: 20121011
  3. LORAZEPAM [Suspect]
     Indication: SUICIDE ATTEMPT
     Dosage: daily dose unknown, overdose 20 DF total
     Route: 048
     Dates: start: 20121011
  4. DICLOFENAC (UNKNOWN) [Suspect]
     Indication: SUICIDE ATTEMPT
     Dosage: daily dose unknown, overdose 2 DF total
     Route: 030
     Dates: start: 20121011
  5. PANTOPRAZOLE SODIUM [Suspect]
     Indication: SUICIDE ATTEMPT
     Dosage: daily dose unknown, overdose 14 DF total
     Route: 048
     Dates: start: 20121011

REACTIONS (5)
  - Toxicity to various agents [Unknown]
  - Drug abuse [Unknown]
  - Intentional drug misuse [Unknown]
  - Overdose [Unknown]
  - Suicidal ideation [Unknown]
